FAERS Safety Report 6532130-2 (Version None)
Quarter: 2010Q1

REPORT INFORMATION
  Report Type: 
  Country: None (occurrence: None)
  Receive Date: 20100107
  Receipt Date: 20100107
  Transmission Date: 20100710
  Serious: No
  Sender: FDA-Public Use
  Company Number: None

PATIENT
  Age: 39 Year
  Sex: Female
  Weight: 56.6996 kg

DRUGS (2)
  1. ALCOHOL FREE COUGH RELIEF DEXTROMETHORPHAN HBR COUGH SUPPRES KROGER VA [Suspect]
     Indication: COUGH
     Dosage: 2 TEASPOONFULS EVERY 6-8 HRS PO TODAY
     Route: 048
  2. ALCOHOL FREE COUGH RELIEF DEXTROMETHORPHAN HBR COUGH SUPPRES KROGER VA [Suspect]
     Indication: OROPHARYNGEAL PAIN
     Dosage: 2 TEASPOONFULS EVERY 6-8 HRS PO TODAY
     Route: 048

REACTIONS (3)
  - CIRCUMSTANCE OR INFORMATION CAPABLE OF LEADING TO MEDICATION ERROR [None]
  - MEDICATION ERROR [None]
  - PRODUCT LABEL ISSUE [None]
